FAERS Safety Report 5957276-9 (Version None)
Quarter: 2008Q4

REPORT INFORMATION
  Report Type: 
  Country: None (occurrence: None)
  Receive Date: 20081106
  Receipt Date: 20080312
  Transmission Date: 20090506
  Serious: Yes (Death, Other)
  Sender: FDA-Public Use
  Company Number: US200711000076

PATIENT
  Age: 33 Year
  Sex: Male

DRUGS (1)
  1. PROZAC [Suspect]
     Indication: DEPRESSION
     Dosage: 20 MG, DAILY (1/D) ORAL
     Route: 048
     Dates: start: 20070901

REACTIONS (4)
  - COMPLETED SUICIDE [None]
  - FEELING ABNORMAL [None]
  - MANIA [None]
  - SUICIDAL IDEATION [None]
